FAERS Safety Report 20176726 (Version 2)
Quarter: 2022Q1

REPORT INFORMATION
  Report Type: Spontaneous
  Country: DE (occurrence: DE)
  Receive Date: 20211213
  Receipt Date: 20220122
  Transmission Date: 20220423
  Serious: Yes (Other)
  Sender: FDA-Public Use
  Company Number: DE-NOVARTISPH-NVSC2021DE283687

PATIENT
  Sex: Male

DRUGS (3)
  1. DIOVAN [Suspect]
     Active Substance: VALSARTAN
     Indication: Hypertension
     Dosage: 1 DOSAGE FORM, BID
     Route: 065
     Dates: start: 20080930
  2. BISOPROLOL FUMARATE [Concomitant]
     Active Substance: BISOPROLOL FUMARATE
     Indication: Product used for unknown indication
     Dosage: 1 DOSAGE FORM, QD
     Route: 065
  3. AMLODIPINE [Concomitant]
     Active Substance: AMLODIPINE BESYLATE
     Indication: Product used for unknown indication
     Dosage: 1 DOSAGE FORM, QD
     Route: 065

REACTIONS (3)
  - Blood pressure increased [Not Recovered/Not Resolved]
  - Dizziness [Not Recovered/Not Resolved]
  - Drug ineffective [Not Recovered/Not Resolved]

NARRATIVE: CASE EVENT DATE: 20080930
